FAERS Safety Report 9912211 (Version 1)
Quarter: 2014Q1

REPORT INFORMATION
  Report Type: Spontaneous
  Country: US (occurrence: US)
  Receive Date: 20140220
  Receipt Date: 20140220
  Transmission Date: 20141002
  Serious: Yes (Hospitalization)
  Sender: FDA-Public Use
  Company Number: US-ABBVIE-14P-163-1201458-00

PATIENT
  Sex: Male

DRUGS (4)
  1. NORVIR [Suspect]
     Indication: PRODUCT USED FOR UNKNOWN INDICATION
  2. DOLUTEGRAVIR [Suspect]
     Indication: HIV INFECTION
     Dates: start: 20110601
  3. PREZISTA [Suspect]
     Indication: PRODUCT USED FOR UNKNOWN INDICATION
  4. INTELENCE [Suspect]
     Indication: PRODUCT USED FOR UNKNOWN INDICATION

REACTIONS (8)
  - Atrial fibrillation [Unknown]
  - Cardioversion [Unknown]
  - Cardiac ablation [Unknown]
  - Staphylococcal infection [Unknown]
  - Mycotic allergy [Unknown]
  - Coronary artery bypass [Unknown]
  - Cardioversion [Unknown]
  - Cardioversion [Unknown]
